FAERS Safety Report 11456182 (Version 1)
Quarter: 2015Q3

REPORT INFORMATION
  Report Type: Report from Study
  Country: DE (occurrence: DE)
  Receive Date: 20150903
  Receipt Date: 20150903
  Transmission Date: 20151125
  Serious: Yes (Other)
  Sender: FDA-Public Use
  Company Number: DE-INCYTE CORPORATION-2015IN004256

PATIENT
  Sex: Male
  Weight: 76 kg

DRUGS (10)
  1. LISINOPRIL. [Concomitant]
     Active Substance: LISINOPRIL
     Dosage: 1 OT, QD
     Route: 065
  2. SIMVASTATIN. [Concomitant]
     Active Substance: SIMVASTATIN
     Indication: HYPERCHOLESTEROLAEMIA
     Dosage: 1 OT, QD
     Route: 048
     Dates: start: 20050101
  3. INCB018424 [Suspect]
     Active Substance: RUXOLITINIB
     Dosage: 4 DF QD (OF 5 MG)
     Route: 048
     Dates: start: 20141215, end: 20150519
  4. INCB018424 [Suspect]
     Active Substance: RUXOLITINIB
     Dosage: 4 DF QD (OF 5 MG)
     Route: 048
     Dates: start: 20150616
  5. INCB018424 [Suspect]
     Active Substance: RUXOLITINIB
     Indication: MYELOFIBROSIS
     Dosage: 2 DF QD (OF 15 MG)
     Route: 048
     Dates: start: 20141107, end: 20141127
  6. INCB018424 [Suspect]
     Active Substance: RUXOLITINIB
     Dosage: 2 DF QD (OF 5 MG)
     Route: 048
     Dates: start: 20150520, end: 20150615
  7. METFORMIN [Concomitant]
     Active Substance: METFORMIN HYDROCHLORIDE
     Dosage: 1 OT, QD
     Route: 065
  8. CEFURAX [Concomitant]
     Active Substance: CEFUROXIME AXETIL
     Indication: BRONCHITIS
     Dosage: 2 OT, QD
     Route: 065
     Dates: start: 20141209, end: 20141214
  9. LISINOPRIL. [Concomitant]
     Active Substance: LISINOPRIL
     Indication: HYPERTENSION
     Dosage: UNK
     Route: 065
  10. METFORMIN [Concomitant]
     Active Substance: METFORMIN HYDROCHLORIDE
     Indication: DIABETES MELLITUS
     Dosage: UNK
     Route: 065

REACTIONS (1)
  - Iron overload [Not Recovered/Not Resolved]

NARRATIVE: CASE EVENT DATE: 20150818
